FAERS Safety Report 6285088-8 (Version None)
Quarter: 2009Q3

REPORT INFORMATION
  Report Type: 
  Country: None (occurrence: None)
  Receive Date: 20090727
  Receipt Date: 20090722
  Transmission Date: 20100115
  Serious: Yes (Hospitalization, Other)
  Sender: FDA-Public Use
  Company Number: JP-MERCK-0907USA02914

PATIENT
  Age: 62 Year
  Sex: Female
  Weight: 75 kg

DRUGS (4)
  1. HYZAAR [Suspect]
     Indication: HYPERTENSION
     Route: 048
     Dates: start: 20081212, end: 20090707
  2. PEPCID [Concomitant]
     Indication: PROPHYLAXIS
     Route: 048
     Dates: start: 19930101
  3. PREDNISOLONE [Concomitant]
     Indication: IDIOPATHIC THROMBOCYTOPENIC PURPURA
     Route: 048
     Dates: start: 20060714
  4. CINAL [Concomitant]
     Indication: HAEMORRHAGIC DIATHESIS
     Route: 048
     Dates: start: 19930101

REACTIONS (2)
  - BLOOD CREATINE PHOSPHOKINASE INCREASED [None]
  - DELUSIONAL DISORDER, PERSECUTORY TYPE [None]
